FAERS Safety Report 4848631-9 (Version None)
Quarter: 2005Q4

REPORT INFORMATION
  Report Type: 
  Country: None (occurrence: None)
  Receive Date: 20051115
  Receipt Date: 20051007
  Transmission Date: 20060501
  Serious: Yes (Hospitalization)
  Sender: FDA-Public Use
  Company Number: 420686

PATIENT

DRUGS (1)
  1. PEGASYS [Suspect]
     Indication: HEPATITIS C VIRUS

REACTIONS (1)
  - PNEUMONIA [None]
